FAERS Safety Report 24554413 (Version 1)
Quarter: 2024Q4

REPORT INFORMATION
  Report Type: Spontaneous
  Country: CA (occurrence: CA)
  Receive Date: 20241028
  Receipt Date: 20241028
  Transmission Date: 20250115
  Serious: Yes (Hospitalization)
  Sender: ROCHE
  Company Number: CA-002147023-NVSC2024CA205441

PATIENT
  Age: 13 Year
  Sex: Female

DRUGS (1)
  1. OMALIZUMAB [Suspect]
     Active Substance: OMALIZUMAB
     Indication: Chronic spontaneous urticaria
     Dosage: 300 MG, Q4W (1 EVERY 4 WEEKS)
     Route: 050

REACTIONS (6)
  - Blood pressure decreased [Unknown]
  - Body temperature abnormal [Unknown]
  - Heart rate abnormal [Unknown]
  - Nausea [Unknown]
  - Pharyngeal swelling [Unknown]
  - Swelling face [Unknown]
